FAERS Safety Report 24624992 (Version 1)
Quarter: 2024Q4

REPORT INFORMATION
  Report Type: Spontaneous
  Country: US (occurrence: US)
  Receive Date: 20241115
  Receipt Date: 20241115
  Transmission Date: 20250114
  Serious: Yes (Other)
  Sender: HIKMA
  Company Number: US-HIKMA PHARMACEUTICALS USA INC.-US-H14001-24-10479

PATIENT
  Age: 73 Year
  Sex: Female

DRUGS (6)
  1. DOXYCYCLINE [Suspect]
     Active Substance: DOXYCYCLINE
     Indication: Pemphigoid
     Dosage: UNKNOWN
     Route: 065
  2. DOXYCYCLINE [Suspect]
     Active Substance: DOXYCYCLINE
     Indication: Ocular pemphigoid
  3. NIACINAMIDE [Concomitant]
     Active Substance: NIACINAMIDE
     Indication: Pemphigoid
     Dosage: UNKNOWN
     Route: 065
  4. NIACINAMIDE [Concomitant]
     Active Substance: NIACINAMIDE
     Indication: Ocular pemphigoid
  5. PREDNISONE [Concomitant]
     Active Substance: PREDNISONE
     Indication: Pemphigoid
     Dosage: UNKNOWN
     Route: 065
  6. PREDNISONE [Concomitant]
     Active Substance: PREDNISONE
     Indication: Ocular pemphigoid

REACTIONS (3)
  - Blood loss anaemia [Unknown]
  - Gastric ulcer haemorrhage [Unknown]
  - Gastritis [Unknown]
